FAERS Safety Report 14569689 (Version 3)
Quarter: 2018Q4

REPORT INFORMATION
  Report Type: Report from Study
  Country: US (occurrence: US)
  Receive Date: 20180224
  Receipt Date: 20181224
  Transmission Date: 20190204
  Serious: Yes (Other)
  Sender: FDA-Public Use
  Company Number: PHHY2018US030375

PATIENT
  Age: 54 Year
  Sex: Female

DRUGS (1)
  1. GILENYA [Suspect]
     Active Substance: FINGOLIMOD HYDROCHLORIDE
     Indication: MULTIPLE SCLEROSIS
     Dosage: UNK, QD
     Route: 048

REACTIONS (10)
  - Basal cell carcinoma [Unknown]
  - Haemangioma [Unknown]
  - Wrist fracture [Recovered/Resolved]
  - Papule [Unknown]
  - Melanocytic naevus [Unknown]
  - Vision blurred [Unknown]
  - Blood pressure increased [Unknown]
  - Cyst [Unknown]
  - Actinic keratosis [Unknown]
  - Osteoarthritis [Recovered/Resolved]

NARRATIVE: CASE EVENT DATE: 20171023
